FAERS Safety Report 16155136 (Version 5)
Quarter: 2019Q3

REPORT INFORMATION
  Report Type: Spontaneous
  Country: CA (occurrence: CA)
  Receive Date: 20190403
  Receipt Date: 20190909
  Transmission Date: 20191004
  Serious: Yes (Other)
  Sender: FDA-Public Use
  Company Number: CA-BEH-2019100807

PATIENT
  Age: 36 Year
  Sex: Female
  Weight: 68.03 kg

DRUGS (22)
  1. BERINERT [Suspect]
     Active Substance: HUMAN C1-ESTERASE INHIBITOR
     Dosage: 1500 INTERNATIONAL UNIT, QD
     Route: 042
     Dates: start: 20190311
  2. BERINERT [Suspect]
     Active Substance: HUMAN C1-ESTERASE INHIBITOR
     Dosage: 1500 INTERNATIONAL UNIT, QD
     Route: 042
     Dates: start: 20190320
  3. BERINERT [Suspect]
     Active Substance: HUMAN C1-ESTERASE INHIBITOR
     Dosage: 1500 INTERNATIONAL UNIT, QD
     Route: 042
     Dates: start: 20190321
  4. BERINERT [Suspect]
     Active Substance: HUMAN C1-ESTERASE INHIBITOR
     Indication: HEREDITARY ANGIOEDEMA
     Dosage: 1500 INTERNATIONAL UNIT, QD
     Route: 042
     Dates: start: 20190305
  5. BERINERT [Suspect]
     Active Substance: HUMAN C1-ESTERASE INHIBITOR
     Indication: HEREDITARY ANGIOEDEMA WITH NORMAL C1 ESTERASE INHIBITOR
     Dosage: 1500 INTERNATIONAL UNIT, QD
     Route: 042
     Dates: start: 20190309
  6. BERINERT [Suspect]
     Active Substance: HUMAN C1-ESTERASE INHIBITOR
     Dosage: 1500 INTERNATIONAL UNIT, QD
     Route: 042
     Dates: start: 20190315
  7. BERINERT [Suspect]
     Active Substance: HUMAN C1-ESTERASE INHIBITOR
     Dosage: 1500 INTERNATIONAL UNIT, QD
     Route: 042
     Dates: start: 20190320
  8. BERINERT [Suspect]
     Active Substance: HUMAN C1-ESTERASE INHIBITOR
     Dosage: 1500 INTERNATIONAL UNIT, QD
     Route: 042
     Dates: start: 20190315
  9. BERINERT [Suspect]
     Active Substance: HUMAN C1-ESTERASE INHIBITOR
     Dosage: 1500 INTERNATIONAL UNIT, QD
     Route: 042
     Dates: start: 20190316
  10. BERINERT [Suspect]
     Active Substance: HUMAN C1-ESTERASE INHIBITOR
     Dosage: 1500 INTERNATIONAL UNIT, QD
     Route: 042
     Dates: start: 20190321
  11. BERINERT [Suspect]
     Active Substance: HUMAN C1-ESTERASE INHIBITOR
     Dosage: UNK
     Route: 065
  12. BERINERT [Suspect]
     Active Substance: HUMAN C1-ESTERASE INHIBITOR
     Indication: PROPHYLAXIS
     Dosage: 1500 INTERNATIONAL UNIT, QD
     Route: 042
     Dates: start: 20190305
  13. BERINERT [Suspect]
     Active Substance: HUMAN C1-ESTERASE INHIBITOR
     Indication: PROPHYLAXIS
     Dosage: 1500 INTERNATIONAL UNIT, QD
     Route: 042
     Dates: start: 20190305
  14. BERINERT [Suspect]
     Active Substance: HUMAN C1-ESTERASE INHIBITOR
     Dosage: UNK
     Route: 065
  15. BERINERT [Suspect]
     Active Substance: HUMAN C1-ESTERASE INHIBITOR
     Dosage: 1500 INTERNATIONAL UNIT, QD
     Route: 042
     Dates: start: 20190318
  16. BERINERT [Suspect]
     Active Substance: HUMAN C1-ESTERASE INHIBITOR
     Dosage: 1500 INTERNATIONAL UNIT, QD
     Route: 042
     Dates: start: 20190318
  17. BERINERT [Suspect]
     Active Substance: HUMAN C1-ESTERASE INHIBITOR
     Indication: HEREDITARY ANGIOEDEMA
     Dosage: 1500 INTERNATIONAL UNIT, QD
     Route: 042
     Dates: start: 20190305
  18. BERINERT [Suspect]
     Active Substance: HUMAN C1-ESTERASE INHIBITOR
     Dosage: 1500 INTERNATIONAL UNIT, QD
     Route: 042
     Dates: start: 20190316
  19. BERINERT [Suspect]
     Active Substance: HUMAN C1-ESTERASE INHIBITOR
     Dosage: 1500 INTERNATIONAL UNIT, QD
     Route: 042
     Dates: start: 20190311
  20. BERINERT [Suspect]
     Active Substance: HUMAN C1-ESTERASE INHIBITOR
     Indication: HEREDITARY ANGIOEDEMA WITH NORMAL C1 ESTERASE INHIBITOR
     Dosage: 1500 INTERNATIONAL UNIT, QD
     Route: 042
     Dates: start: 20190309
  21. BERINERT [Suspect]
     Active Substance: HUMAN C1-ESTERASE INHIBITOR
     Dosage: 1500 INTERNATIONAL UNIT, QD
     Route: 042
     Dates: start: 20190312
  22. BERINERT [Suspect]
     Active Substance: HUMAN C1-ESTERASE INHIBITOR
     Dosage: 1500 INTERNATIONAL UNIT, QD
     Route: 042
     Dates: start: 20190312

REACTIONS (14)
  - Pain [Recovered/Resolved]
  - Headache [Recovered/Resolved]
  - Neck pain [Recovered/Resolved]
  - No adverse event [Unknown]
  - Product use in unapproved indication [Unknown]
  - Facial pain [Recovered/Resolved]
  - Device issue [Unknown]
  - Nausea [Recovered/Resolved]
  - Malaise [Unknown]
  - Abdominal pain upper [Recovered/Resolved]
  - Hereditary angioedema [Unknown]
  - Paraesthesia [Recovered/Resolved]
  - Product preparation issue [Recovered/Resolved]
  - Malaise [Recovered/Resolved]

NARRATIVE: CASE EVENT DATE: 20190315
